FAERS Safety Report 23675295 (Version 1)
Quarter: 2024Q1

REPORT INFORMATION
  Report Type: Spontaneous
  Country: US (occurrence: None)
  Receive Date: 20240327
  Receipt Date: 20240327
  Transmission Date: 20240410
  Serious: No
  Sender: FDA-Public Use
  Company Number: 2024A057424

PATIENT
  Age: 28540 Day

DRUGS (1)
  1. BREZTRI [Suspect]
     Active Substance: BUDESONIDE\FORMOTEROL\GLYCOPYRROLATE
     Dosage: HAS BEEN TAKING BREZTRI FOR A YEAR AND A HALF TO 2 AND A HALF YEARS.
     Route: 055

REACTIONS (3)
  - Dyspnoea [Unknown]
  - Respiration abnormal [Unknown]
  - Device delivery system issue [Unknown]

NARRATIVE: CASE EVENT DATE: 20240307
